FAERS Safety Report 10513867 (Version 8)
Quarter: 2015Q4

REPORT INFORMATION
  Report Type: Report from Study
  Country: ES (occurrence: ES)
  Receive Date: 20141013
  Receipt Date: 20151009
  Transmission Date: 20160304
  Serious: Yes (Hospitalization)
  Sender: FDA-Public Use
  Company Number: ES-009507513-1407ESP006115

PATIENT
  Age: 70 Year
  Sex: Male
  Weight: 100 kg

DRUGS (19)
  1. BOI K ASPARTICO [Concomitant]
     Indication: HYPOKALAEMIA
     Dosage: TOTAL DAILY DOSE: 1 TABLET, QD
     Route: 048
     Dates: start: 201407, end: 20140806
  2. PEMBROLIZUMAB. [Suspect]
     Active Substance: PEMBROLIZUMAB
     Indication: PLASMA CELL MYELOMA
     Dosage: 2 MG/KG, EVERY TWO WEEKS ON DAY 1 AND 15 OF 28 DAY CYCLE
     Route: 042
     Dates: start: 20140611, end: 20140611
  3. LENALIDOMIDE [Suspect]
     Active Substance: LENALIDOMIDE
     Indication: PLASMA CELL MYELOMA
     Dosage: 25 MG DAILY, ON DAYS 1-21 OF EACH 28 DAY CYCLE
     Route: 048
     Dates: start: 20140611, end: 20140630
  4. LENALIDOMIDE [Suspect]
     Active Substance: LENALIDOMIDE
     Dosage: 15 MG DAILY,ON DAYS 1-21 OF EACH 28 DAY CYCLE
     Route: 048
     Dates: start: 20140731
  5. DIAZEPAM. [Concomitant]
     Active Substance: DIAZEPAM
     Indication: MUSCULOSKELETAL CHEST PAIN
     Dosage: 10 MG , QD, FORMULATION: PILL
     Route: 048
     Dates: start: 201407, end: 20140807
  6. ASPIRIN. [Concomitant]
     Active Substance: ASPIRIN
     Indication: THROMBOSIS PROPHYLAXIS
     Dosage: 100 MG, QD
     Route: 048
     Dates: start: 20140611, end: 20140828
  7. NOVORAPID [Concomitant]
     Active Substance: INSULIN ASPART
     Indication: HYPERGLYCAEMIA
     Dosage: UNK, PRN
     Route: 058
     Dates: start: 201407, end: 20150211
  8. DEXAMETHASONE. [Suspect]
     Active Substance: DEXAMETHASONE
     Dosage: 40 MG DAILY , ON DAYS 1, 8, 15 AND 22 OF EACH 28-DAY CYCLE
     Route: 048
     Dates: start: 20140703, end: 20140703
  9. LANTUS [Concomitant]
     Active Substance: INSULIN GLARGINE
     Indication: HYPERGLYCAEMIA
     Dosage: 46 U, QD
     Route: 058
     Dates: start: 201407, end: 20150211
  10. PEMBROLIZUMAB. [Suspect]
     Active Substance: PEMBROLIZUMAB
     Dosage: 2 MG/KG, EVERY TWO WEEKS ON DAY 1 AND 15  OF 28 DAY CYCLE
     Route: 042
     Dates: start: 20140626, end: 20140626
  11. PEMBROLIZUMAB. [Suspect]
     Active Substance: PEMBROLIZUMAB
     Dosage: 2 MG/KG, ON DAY 1 AND 15  OF 28 DAY CYCLE
     Route: 042
     Dates: start: 20140731
  12. LENALIDOMIDE [Suspect]
     Active Substance: LENALIDOMIDE
     Dosage: 25 MG DAILY, ON DAYS 1-21 OF EACH 28 DAY CYCLE
     Route: 048
     Dates: start: 20140701, end: 20140701
  13. ALLOPURINOL. [Concomitant]
     Active Substance: ALLOPURINOL
     Indication: HYPERURICAEMIA
     Dosage: 300 MG, QD, FORMULATION: PILL
     Route: 048
     Dates: start: 201407, end: 20140730
  14. TADALAFIL [Concomitant]
     Active Substance: TADALAFIL
     Indication: ERECTILE DYSFUNCTION
     Dosage: 5 MG, QD
     Route: 048
     Dates: start: 20140611
  15. DEXAMETHASONE. [Suspect]
     Active Substance: DEXAMETHASONE
     Dosage: 40 MG DAILY , ON DAYS 1, 8, 15 AND 22 OF EACH 28-DAY CYCLE
     Route: 048
     Dates: start: 20140731
  16. ASPIRIN. [Concomitant]
     Active Substance: ASPIRIN
     Dosage: 100 MG, QD
     Route: 048
     Dates: start: 20140903
  17. FORXIGA [Concomitant]
     Active Substance: DAPAGLIFLOZIN
     Indication: HYPERGLYCAEMIA
     Dosage: 10 MG, QD
     Route: 048
     Dates: start: 20140611, end: 20150211
  18. DEXAMETHASONE. [Suspect]
     Active Substance: DEXAMETHASONE
     Indication: PLASMA CELL MYELOMA
     Dosage: 40 MG DAILY , ON DAYS 1, 8, 15 AND 22 OF EACH 28-DAY CYCLE
     Route: 048
     Dates: start: 20140611, end: 20140626
  19. ESOMEPRAZOLE MAGNESIUM. [Concomitant]
     Active Substance: ESOMEPRAZOLE MAGNESIUM
     Indication: PROPHYLAXIS AGAINST GASTROINTESTINAL ULCER
     Dosage: 40 MG, QD
     Route: 048
     Dates: start: 20140611

REACTIONS (2)
  - Renal failure [Recovered/Resolved]
  - Pneumonia [Recovered/Resolved]

NARRATIVE: CASE EVENT DATE: 20140708
